FAERS Safety Report 7240465-3 (Version None)
Quarter: 2011Q1

REPORT INFORMATION
  Report Type: 
  Country: None (occurrence: None)
  Receive Date: 20110118
  Receipt Date: 20110103
  Transmission Date: 20110831
  Serious: Yes (Other)
  Sender: FDA-Public Use
  Company Number: COL_03991_2011

PATIENT
  Age: 77 Year
  Sex: Female

DRUGS (3)
  1. PURE OLIVE OIL SOAP [Suspect]
  2. DIAL SOAP [Suspect]
  3. PALMOLIVE BAR SOAP UNSPECIFIED [Suspect]
     Dosage: TOPICAL
     Route: 061

REACTIONS (1)
  - BASAL CELL CARCINOMA [None]
